FAERS Safety Report 11634913 (Version 1)
Quarter: 2015Q4

REPORT INFORMATION
  Report Type: Report from Study
  Country: US (occurrence: US)
  Receive Date: 20151015
  Receipt Date: 20151015
  Transmission Date: 20160304
  Serious: Yes (Hospitalization)
  Sender: FDA-Public Use
  Company Number: PHEH2015US020234

PATIENT
  Sex: Female
  Weight: 68.27 kg

DRUGS (1)
  1. GILENYA [Suspect]
     Active Substance: FINGOLIMOD HYDROCHLORIDE
     Indication: MULTIPLE SCLEROSIS
     Dosage: 0.5 MG, QD
     Route: 048
     Dates: start: 20150720

REACTIONS (6)
  - Liver function test abnormal [Unknown]
  - Multiple sclerosis relapse [Unknown]
  - Migraine [Unknown]
  - Multiple sclerosis relapse [Recovered/Resolved]
  - Skin burning sensation [Unknown]
  - Headache [Unknown]
